FAERS Safety Report 4644906-7 (Version None)
Quarter: 2005Q2

REPORT INFORMATION
  Report Type: 
  Country: None (occurrence: None)
  Receive Date: 20050422
  Receipt Date: 20050415
  Transmission Date: 20051028
  Serious: Yes (Other)
  Sender: FDA-Public Use
  Company Number: 200510841BCC

PATIENT
  Age: 52 Year
  Sex: Female
  Weight: 170 kg

DRUGS (6)
  1. ALKA SELTZER MORNING RELIEF [Suspect]
     Dosage: 1000/130 MG, BID , ORAL
     Route: 048
     Dates: start: 20050204, end: 20050209
  2. AUGMENTIN '125' [Concomitant]
  3. FLEXERIL [Concomitant]
  4. AMITRIPTYLINE HCL TAB [Concomitant]
  5. NEURONTIN [Concomitant]
  6. NORVASC [Concomitant]

REACTIONS (1)
  - HORNER'S SYNDROME [None]
